FAERS Safety Report 9649040 (Version 2)
Quarter: 2013Q4

REPORT INFORMATION
  Report Type: Spontaneous
  Country: US (occurrence: US)
  Receive Date: 20131028
  Receipt Date: 20131028
  Transmission Date: 20140711
  Serious: Yes (Hospitalization, Other)
  Sender: FDA-Public Use
  Company Number: US-BAXTER-2013BAX034681

PATIENT
  Age: 49 Year
  Sex: Female

DRUGS (4)
  1. DIANEAL LOW CALCIUM [Suspect]
     Indication: RENAL FAILURE CHRONIC
     Route: 033
     Dates: end: 201310
  2. DIANEAL LOW CALCIUM [Suspect]
     Route: 033
     Dates: start: 201310
  3. DIANEAL LOW CALCIUM [Suspect]
     Indication: RENAL FAILURE CHRONIC
     Route: 033
     Dates: start: 20090220, end: 201310
  4. DIANEAL LOW CALCIUM [Suspect]
     Route: 033
     Dates: start: 201310

REACTIONS (7)
  - Colitis [Recovering/Resolving]
  - Toxic encephalopathy [Recovered/Resolved]
  - Metabolic encephalopathy [Recovered/Resolved]
  - Sepsis [Recovered/Resolved]
  - Peritonitis [Recovered/Resolved]
  - Decreased appetite [Recovered/Resolved]
  - Dehydration [Recovered/Resolved]
